FAERS Safety Report 16910600 (Version 1)
Quarter: 2019Q4

REPORT INFORMATION
  Report Type: Spontaneous
  Country: US (occurrence: US)
  Receive Date: 20190820
  Receipt Date: 20190820
  Transmission Date: 20200122
  Serious: No
  Sender: FDA-Public Use
  Company Number: None

PATIENT
  Age: 58 Year
  Sex: Female

DRUGS (1)
  1. ORENCIA [Suspect]
     Active Substance: ABATACEPT
     Indication: PSORIATIC ARTHROPATHY

REACTIONS (5)
  - Product dose omission [None]
  - Memory impairment [None]
  - Burning sensation [None]
  - Oral herpes [None]
  - Arthritis [None]

NARRATIVE: CASE EVENT DATE: 20190820
